FAERS Safety Report 13151669 (Version 2)
Quarter: 2017Q1

REPORT INFORMATION
  Report Type: Report from Study
  Country: TW (occurrence: TW)
  Receive Date: 20170125
  Receipt Date: 20170203
  Transmission Date: 20170428
  Serious: Yes (Hospitalization)
  Sender: FDA-Public Use
  Company Number: TW-ASTRAZENECA-2017SE06270

PATIENT
  Age: 669 Month
  Sex: Male

DRUGS (13)
  1. CODEINE [Concomitant]
     Active Substance: CODEINE
     Indication: COUGH
     Dates: start: 20170112
  2. ULTRACET [Concomitant]
     Active Substance: ACETAMINOPHEN\TRAMADOL HYDROCHLORIDE
     Indication: TENDONITIS
     Dates: start: 20160922
  3. ALPRAZOLAM. [Concomitant]
     Active Substance: ALPRAZOLAM
     Indication: INSOMNIA
     Dates: start: 20161020
  4. TAGRISSO [Suspect]
     Active Substance: OSIMERTINIB
     Indication: NON-SMALL CELL LUNG CANCER
     Route: 048
     Dates: start: 20161020
  5. METFORMIN [Concomitant]
     Active Substance: METFORMIN HYDROCHLORIDE
     Indication: TYPE 2 DIABETES MELLITUS
     Dates: start: 20151109
  6. LORAZEPAM. [Concomitant]
     Active Substance: LORAZEPAM
     Indication: INSOMNIA
     Dates: start: 20161020
  7. THEOPHYLLINE [Concomitant]
     Active Substance: THEOPHYLLINE ANHYDROUS
     Indication: CHRONIC OBSTRUCTIVE PULMONARY DISEASE
     Dates: start: 20151125
  8. SILODOSIN [Concomitant]
     Active Substance: SILODOSIN
     Indication: BENIGN PROSTATIC HYPERPLASIA
     Dates: start: 20160603
  9. BACLOFEN. [Concomitant]
     Active Substance: BACLOFEN
     Indication: BENIGN PROSTATIC HYPERPLASIA
     Dates: start: 20160603
  10. COUMADIN [Concomitant]
     Active Substance: WARFARIN SODIUM
     Indication: DEEP VEIN THROMBOSIS
     Dates: start: 20160725
  11. BROWN MIXTURE LIQUID [Concomitant]
     Indication: COUGH
     Dates: start: 20170112
  12. IMIPRAMINE [Concomitant]
     Active Substance: IMIPRAMINE
     Indication: BENIGN PROSTATIC HYPERPLASIA
     Dates: start: 20160603
  13. TIOTROPIUM [Concomitant]
     Active Substance: TIOTROPIUM
     Indication: CHRONIC OBSTRUCTIVE PULMONARY DISEASE
     Dates: start: 20151125

REACTIONS (1)
  - Chronic obstructive pulmonary disease [Recovered/Resolved]

NARRATIVE: CASE EVENT DATE: 20170112
